FAERS Safety Report 11309971 (Version 2)
Quarter: 2015Q3

REPORT INFORMATION
  Report Type: Report from Study
  Country: US (occurrence: US)
  Receive Date: 20150724
  Receipt Date: 20150820
  Transmission Date: 20151125
  Serious: Yes (Hospitalization, Other)
  Sender: FDA-Public Use
  Company Number: US-BAYER-2015-376330

PATIENT
  Age: 71 Year
  Sex: Male

DRUGS (2)
  1. STIVARGA [Suspect]
     Active Substance: REGORAFENIB
     Indication: COLORECTAL CANCER METASTATIC
     Dosage: 120 MG, QD
     Route: 048
     Dates: start: 20150705, end: 20150711
  2. STIVARGA [Suspect]
     Active Substance: REGORAFENIB
     Indication: COLORECTAL CANCER METASTATIC
     Dosage: 40 MG, QD
     Route: 048
     Dates: start: 20150717, end: 20150803

REACTIONS (8)
  - General physical health deterioration [None]
  - Diarrhoea [None]
  - Pain in extremity [None]
  - Drug ineffective [None]
  - Nausea [None]
  - Dehydration [None]
  - Back pain [None]
  - Loss of consciousness [None]

NARRATIVE: CASE EVENT DATE: 20150705
